FAERS Safety Report 16467118 (Version 1)
Quarter: 2019Q2

REPORT INFORMATION
  Report Type: Spontaneous
  Country: US (occurrence: US)
  Receive Date: 20190624
  Receipt Date: 20190624
  Transmission Date: 20190711
  Serious: No
  Sender: FDA-Public Use
  Company Number: US-ALK-ABELLO A/S-2019AA001982

PATIENT

DRUGS (1)
  1. GRASTEK [Suspect]
     Active Substance: PHLEUM PRATENSE POLLEN
     Indication: PRODUCT USED FOR UNKNOWN INDICATION
     Dosage: UNK
     Dates: start: 20190521

REACTIONS (1)
  - Headache [Unknown]
